FAERS Safety Report 23369781 (Version 1)
Quarter: 2024Q1

REPORT INFORMATION
  Report Type: Spontaneous
  Country: US (occurrence: None)
  Receive Date: 20240104
  Receipt Date: 20240104
  Transmission Date: 20240410
  Serious: Yes (Hospitalization)
  Sender: FDA-Public Use
  Company Number: None

PATIENT
  Sex: Female

DRUGS (4)
  1. GAMMAGARD LIQUID [Suspect]
     Active Substance: HUMAN IMMUNOGLOBULIN G
     Indication: Hypogammaglobulinaemia
     Dosage: FREQUENCY : MONTHLY;?
     Route: 042
     Dates: start: 202309
  2. HEPARIN L/L FLUSH SYRINGE [Concomitant]
  3. SODIUM CHLOR (500ML/BAG) [Concomitant]
  4. DUPIXENT PFS [Concomitant]

REACTIONS (5)
  - Anaphylactic reaction [None]
  - Infusion related reaction [None]
  - Throat irritation [None]
  - Wheezing [None]
  - Dyspnoea [None]
